FAERS Safety Report 8105887-7 (Version None)
Quarter: 2012Q1

REPORT INFORMATION
  Report Type: 
  Country: None (occurrence: None)
  Receive Date: 20120202
  Receipt Date: 20120123
  Transmission Date: 20120608
  Serious: No
  Sender: FDA-Public Use
  Company Number: US-BIOGENIDEC-2011BI044074

PATIENT
  Age: 43 Year
  Sex: Female

DRUGS (1)
  1. TYSABRI [Suspect]
     Indication: MULTIPLE SCLEROSIS
     Route: 042
     Dates: start: 20110902, end: 20111003

REACTIONS (4)
  - BURNING SENSATION [None]
  - MULTIPLE SCLEROSIS RELAPSE [None]
  - DRUG SPECIFIC ANTIBODY PRESENT [None]
  - PRURITUS ALLERGIC [None]
